FAERS Safety Report 8439040-4 (Version None)
Quarter: 2012Q2

REPORT INFORMATION
  Report Type: 
  Country: None (occurrence: None)
  Receive Date: 20120615
  Receipt Date: 20120604
  Transmission Date: 20120825
  Serious: No
  Sender: FDA-Public Use
  Company Number: US-ELI_LILLY_AND_COMPANY-US201205000628

PATIENT
  Age: 60 Year
  Sex: Female
  Weight: 81.633 kg

DRUGS (12)
  1. CYMBALTA [Suspect]
     Indication: DEPRESSION
     Dosage: 60 MG, QD
     Route: 048
     Dates: start: 20120229
  2. NEXIUM [Concomitant]
  3. SIMVASTATIN [Concomitant]
  4. AMITIZA [Concomitant]
  5. ATROVENT [Concomitant]
  6. ACTONEL [Concomitant]
  7. TRAMADOL HCL [Concomitant]
  8. DRISDOL [Concomitant]
  9. ALLEGRA [Concomitant]
  10. RELPAX [Concomitant]
  11. CYMBALTA [Suspect]
     Dosage: UNK, UNKNOWN
  12. TEMAZEPAM [Concomitant]

REACTIONS (1)
  - MOUTH ULCERATION [None]
